FAERS Safety Report 4667140-3 (Version None)
Quarter: 2005Q2

REPORT INFORMATION
  Report Type: 
  Country: None (occurrence: None)
  Receive Date: 20050520
  Receipt Date: 20040331
  Transmission Date: 20051028
  Serious: No
  Sender: FDA-Public Use
  Company Number: PHEH2004US03703

PATIENT
  Age: 60 Year
  Sex: Male

DRUGS (9)
  1. ZOMETA [Suspect]
     Indication: MULTIPLE MYELOMA
     Dosage: 4 MG, EVERY 3 WEEKS
     Route: 042
     Dates: start: 20020603
  2. THALIDOMIDE [Concomitant]
  3. VELCADE [Concomitant]
  4. CHLORHEXIDINE [Concomitant]
  5. TRAZODONE [Concomitant]
  6. ZOLOFT [Concomitant]
  7. PAMIDRONATE DISODIUM [Concomitant]
  8. NEURONTIN [Concomitant]
  9. EPOGEN [Concomitant]

REACTIONS (4)
  - GINGIVAL RECESSION [None]
  - ORAL SURGERY [None]
  - PERIODONTITIS [None]
  - POST PROCEDURAL COMPLICATION [None]
